FAERS Safety Report 9696433 (Version 1)
Quarter: 2013Q4

REPORT INFORMATION
  Report Type: Spontaneous
  Country: GB (occurrence: None)
  Receive Date: 20131115
  Receipt Date: 20131115
  Transmission Date: 20140711
  Serious: Yes (Hospitalization)
  Sender: FDA-Public Use
  Company Number: SYM-2013-12680

PATIENT
  Age: 63 Year
  Sex: Female

DRUGS (27)
  1. TILDIEM LA [Suspect]
     Indication: MYOCARDIAL ISCHAEMIA
     Dosage: 200 MG, DAILY, ORAL
     Route: 048
     Dates: start: 20131018, end: 20131021
  2. FOLIC ACID (FOLIC ACID) (FOLIC ACID) [Concomitant]
  3. GLYCERYL TRINITRATE (GLYCERYL TRINITRATE) (GLYCERYL TRINITRATE) [Concomitant]
  4. IRBESARTAN (IRBESARTAN) (IRBESARTAN) [Concomitant]
  5. LEVOTHYROXINE (LEVOTHYROXINE) (LEVOTHYROXINE)? [Concomitant]
  6. PERINDOPRIL (PERINDOPRIL) (PERINDOPRIL)? [Concomitant]
  7. SALBUTAMOL (SALBUTAMOL) (SALBUTAMOL) [Concomitant]
  8. SERETIDE (SERETIDE) (FLUTICASONE PROPIONATE, SALMETEROL XINAFOATE) [Concomitant]
  9. TIOTROPIUM BROMIDE (TIOTROPIUM BROMIDE) (TIOTROPIUM BROMIDE)? [Concomitant]
  10. WARFARIN (WARFARIN) (WARFARIN) [Concomitant]
  11. AMITRIPTYLINE (AMITRIPTYLINE) (AMITRIPTYLINE) [Concomitant]
  12. AMLODIPINE (AMLODIPINE)(AMLODIPINE) [Concomitant]
  13. CO-CODAMOL (PANADEINE CO) (CODEINE PHOSPHATE, PARACETAMOL)? [Concomitant]
  14. DOXAZOSIN (DOXAZOSIN) (DOXAZOSIN) [Concomitant]
  15. LANSOPRAZOLE (LANSOPRAZOLE) (LANSOPRAZOLE) [Concomitant]
  16. MOXONIDINE (MOXONIDINE) (MOXONIDINE) [Concomitant]
  17. PRENISOLONE (PREDNISOLONE) (PREDNISOLONE) [Concomitant]
  18. SPIRONOLACTONE (SPIRONOLACTONE) (SPIRONOLACTONE) [Concomitant]
  19. HYDROXOCOBALAMIN (HYDROXOCOBALAMIN) (HYDROXOCOBALAMIN)? [Concomitant]
  20. PRO D3 (COLECALCIFEROL) (COLECALCIFEROL) [Concomitant]
  21. ASPIRIN (ACETYLSALICYLIC ACID) (ACETYLSALICYLIC ACID) [Concomitant]
  22. IPRATROPIUM BROMIDE (IPRATROPIUM BROMIDE) (IPRATROPIUM BROMIDE)? [Concomitant]
  23. PIPERACILLIN/TAZOBACTAM (PIP/TAZO) (PIPERACILLIN SODIUM, TAZOBACTAM SODIUM)? [Concomitant]
  24. PARACETAMOL (PARACETAMOL) (PARACETAMOL) [Concomitant]
  25. CODEINE (CODEINE) (CODEINE) [Concomitant]
  26. MORPHINE (MORPHINE) (MORPHINE) [Concomitant]
  27. METOCLOPRAMIDE (METOCLOPRAMIDE) (METOCLOPRAMIDE)? [Concomitant]

REACTIONS (6)
  - Chronic obstructive pulmonary disease [None]
  - Condition aggravated [None]
  - Acute myocardial infarction [None]
  - Sputum increased [None]
  - Hepatitis [None]
  - Infection [None]
